FAERS Safety Report 10145856 (Version 1)
Quarter: 2014Q2

REPORT INFORMATION
  Report Type: Spontaneous
  Country: US (occurrence: US)
  Receive Date: 20140501
  Receipt Date: 20140501
  Transmission Date: 20141212
  Serious: No
  Sender: FDA-Public Use
  Company Number: US-ABBVIE-13P-163-1097105-00

PATIENT
  Sex: Female

DRUGS (1)
  1. CREON [Suspect]
     Indication: DYSPEPSIA
     Dosage: 2 CREON CAPSULES TWICE A DAY
     Dates: start: 201212

REACTIONS (2)
  - Rash [Not Recovered/Not Resolved]
  - Off label use [Unknown]
